FAERS Safety Report 6812672-2 (Version None)
Quarter: 2010Q3

REPORT INFORMATION
  Report Type: 
  Country: None (occurrence: None)
  Receive Date: 20100701
  Receipt Date: 20100622
  Transmission Date: 20110219
  Serious: Yes (Hospitalization)
  Sender: FDA-Public Use
  Company Number: JP-ROCHE-710716

PATIENT
  Age: 31 Year
  Sex: Male
  Weight: 164 kg

DRUGS (6)
  1. ROCEPHIN [Suspect]
     Indication: TONSILLITIS BACTERIAL
     Route: 041
     Dates: start: 20100603, end: 20100613
  2. ROCEPHIN [Suspect]
     Route: 041
  3. VOLTAREN [Concomitant]
     Route: 054
     Dates: start: 20100603, end: 20100613
  4. LOXONIN [Concomitant]
     Route: 048
     Dates: start: 20100531, end: 20100606
  5. TAKEPRON [Concomitant]
     Route: 048
     Dates: start: 20100531, end: 20100606
  6. TAKEPRON [Concomitant]
     Route: 048

REACTIONS (2)
  - HEPATIC FUNCTION ABNORMAL [None]
  - LYMPHADENITIS [None]
